FAERS Safety Report 10067912 (Version 1)
Quarter: 2014Q2

REPORT INFORMATION
  Report Type: Report from Study
  Country: JP (occurrence: JP)
  Receive Date: 20140409
  Receipt Date: 20140409
  Transmission Date: 20141212
  Serious: Yes (Hospitalization, Other)
  Sender: FDA-Public Use
  Company Number: JP-AMGEN INC.-JPNCT2014024375

PATIENT
  Age: 80 Year
  Sex: Male
  Weight: 44 kg

DRUGS (24)
  1. DARBEPOETIN ALFA [Suspect]
     Indication: NEPHROGENIC ANAEMIA
     Dosage: 120 MUG, Q4WK
     Route: 058
     Dates: start: 20110204, end: 20120619
  2. ADALAT [Concomitant]
     Dosage: UNK
     Route: 048
  3. NORVASC [Concomitant]
     Dosage: UNK
     Route: 048
  4. DIOVAN [Concomitant]
     Dosage: UNK
     Route: 048
  5. CARDENALIN [Concomitant]
     Dosage: UNK
     Route: 048
  6. DEPAS [Concomitant]
     Dosage: UNK
     Route: 048
  7. URINORM [Concomitant]
     Dosage: UNK
     Route: 048
  8. TAURINE [Concomitant]
     Dosage: UNK
     Route: 048
  9. KETAS [Concomitant]
     Dosage: UNK
     Route: 048
  10. METHYCOBAL [Concomitant]
     Dosage: UNK
     Route: 048
  11. BAYASPIRIN [Concomitant]
     Dosage: UNK
     Route: 048
  12. PLAVIX [Concomitant]
     Dosage: UNK
     Route: 048
  13. LIPITOR [Concomitant]
     Dosage: UNK
     Route: 048
  14. PLETAAL [Concomitant]
     Dosage: UNK
     Route: 048
  15. FLUITRAN [Concomitant]
     Dosage: UNK
     Route: 048
  16. URIEF [Concomitant]
     Dosage: UNK
     Route: 048
  17. MEXITIL [Concomitant]
     Dosage: UNK
     Route: 048
  18. ATELEC [Concomitant]
     Dosage: UNK
     Route: 048
  19. TAKEPRON [Concomitant]
     Dosage: UNK
     Route: 048
  20. LASIX                              /00032601/ [Concomitant]
     Dosage: UNK
     Route: 048
  21. ALDACTONE A [Concomitant]
     Dosage: UNK
     Route: 048
  22. FEBURIC [Concomitant]
     Dosage: UNK
     Route: 048
  23. ARTIST [Concomitant]
     Dosage: UNK
     Route: 048
  24. DUROTEP [Concomitant]
     Dosage: UNK
     Route: 062

REACTIONS (5)
  - Nephrotic syndrome [Recovered/Resolved]
  - Lung neoplasm malignant [Not Recovered/Not Resolved]
  - Cancer pain [Not Recovered/Not Resolved]
  - Blood pressure increased [Recovered/Resolved]
  - Gastrooesophageal reflux disease [Recovered/Resolved]
